FAERS Safety Report 18749165 (Version 1)
Quarter: 2021Q1

REPORT INFORMATION
  Report Type: Report from Study
  Country: CA (occurrence: CA)
  Receive Date: 20210116
  Receipt Date: 20210116
  Transmission Date: 20210419
  Serious: Yes (Other)
  Sender: FDA-Public Use
  Company Number: CA-ACCORD-214239

PATIENT
  Age: 35 Year
  Sex: Female

DRUGS (6)
  1. TOPIRAMATE. [Suspect]
     Active Substance: TOPIRAMATE
     Route: 065
  2. TETRAHYDROCANNABINOL/CANNABIDIOL [Concomitant]
     Active Substance: CANNABIDIOL\.DELTA.8-TETRAHYDROCANNABINOL
     Indication: MIGRAINE
     Route: 065
  3. CYMBALTA [Concomitant]
     Active Substance: DULOXETINE HYDROCHLORIDE
     Route: 065
  4. PROPRANOLOL [Suspect]
     Active Substance: PROPRANOLOL HYDROCHLORIDE
     Indication: MIGRAINE
     Route: 065
  5. TOPIRAMATE. [Concomitant]
     Active Substance: TOPIRAMATE
     Indication: MIGRAINE
  6. BOTULINUM TOXIN TYPE A [Concomitant]
     Active Substance: BOTULINUM TOXIN TYPE A
     Indication: MIGRAINE
     Route: 065

REACTIONS (6)
  - Fibromyalgia [Unknown]
  - Drug ineffective [Unknown]
  - Migraine [Unknown]
  - Parosmia [Unknown]
  - Relapsing multiple sclerosis [Unknown]
  - Headache [Unknown]
